FAERS Safety Report 5382550-7 (Version None)
Quarter: 2007Q3

REPORT INFORMATION
  Report Type: 
  Country: None (occurrence: None)
  Receive Date: 20070710
  Receipt Date: 20070706
  Transmission Date: 20080115
  Serious: Yes (Life-Threatening, Hospitalization, Other)
  Sender: FDA-Public Use
  Company Number: PHEH2007US05134

PATIENT
  Age: 67 Year
  Sex: Female

DRUGS (4)
  1. ZELNORM [Suspect]
     Indication: IRRITABLE BOWEL SYNDROME
     Dosage: 6 MG, BID
     Route: 048
     Dates: start: 20061110, end: 20061231
  2. PROTONIX [Concomitant]
     Dosage: 40 MG, QD
  3. LEVBID [Concomitant]
     Indication: IRRITABLE BOWEL SYNDROME
     Dosage: UNK, BID
  4. TUMS [Concomitant]

REACTIONS (3)
  - CATHETERISATION CARDIAC [None]
  - CHEST PAIN [None]
  - MYOCARDIAL INFARCTION [None]
